FAERS Safety Report 20885689 (Version 2)
Quarter: 2022Q2

REPORT INFORMATION
  Report Type: Spontaneous
  Country: IL (occurrence: IL)
  Receive Date: 20220527
  Receipt Date: 20220617
  Transmission Date: 20220720
  Serious: Yes (Life-Threatening, Hospitalization, Other)
  Sender: FDA-Public Use
  Company Number: IL-BoehringerIngelheim-2022-BI-173003

PATIENT
  Age: 8 Decade
  Sex: Female
  Weight: 70 kg

DRUGS (4)
  1. EMPAGLIFLOZIN\METFORMIN HYDROCHLORIDE [Suspect]
     Active Substance: EMPAGLIFLOZIN\METFORMIN HYDROCHLORIDE
     Indication: Type 2 diabetes mellitus
     Route: 065
     Dates: end: 20220207
  2. METFORMIN [Concomitant]
     Active Substance: METFORMIN HYDROCHLORIDE
     Indication: Product used for unknown indication
  3. glp-1 [Concomitant]
     Indication: Product used for unknown indication
  4. REPAGLINIDE [Concomitant]
     Active Substance: REPAGLINIDE
     Indication: Product used for unknown indication

REACTIONS (8)
  - Ventricular fibrillation [Recovered/Resolved with Sequelae]
  - Mechanical ventilation [Recovered/Resolved]
  - Ventricular tachycardia [Unknown]
  - Dehydration [Recovered/Resolved]
  - Glucose urine [Recovered/Resolved]
  - Face injury [Unknown]
  - Diabetic ketoacidosis [Recovered/Resolved]
  - Pollakiuria [Unknown]

NARRATIVE: CASE EVENT DATE: 20220208
